FAERS Safety Report 25593986 (Version 1)
Quarter: 2025Q3

REPORT INFORMATION
  Report Type: Spontaneous
  Country: US (occurrence: US)
  Receive Date: 20250723
  Receipt Date: 20250723
  Transmission Date: 20251021
  Serious: No
  Sender: ELI LILLY AND COMPANY
  Company Number: US-ELI_LILLY_AND_COMPANY-US202507020045

PATIENT

DRUGS (1)
  1. EMGALITY [Suspect]
     Active Substance: GALCANEZUMAB-GNLM
     Indication: Product used for unknown indication
     Route: 065

REACTIONS (9)
  - Anxiety [Unknown]
  - Palpitations [Unknown]
  - Muscular weakness [Unknown]
  - Muscle twitching [Unknown]
  - Feeling abnormal [Unknown]
  - Decreased appetite [Unknown]
  - Weight increased [Unknown]
  - Hyperarousal [Unknown]
  - Decreased activity [Unknown]
